FAERS Safety Report 7722632-5 (Version None)
Quarter: 2011Q3

REPORT INFORMATION
  Report Type: 
  Country: None (occurrence: None)
  Receive Date: 20110831
  Receipt Date: 20110825
  Transmission Date: 20111222
  Serious: Yes (Hospitalization)
  Sender: FDA-Public Use
  Company Number: JP-MERCK-1106USA02760

PATIENT
  Age: 8 Year
  Sex: Female

DRUGS (11)
  1. PEPCID [Suspect]
     Indication: PROPHYLAXIS AGAINST GASTROINTESTINAL ULCER
     Route: 048
     Dates: start: 20110419, end: 20110610
  2. PREDNISOLONE [Concomitant]
     Indication: JUVENILE ARTHRITIS
     Route: 048
     Dates: start: 20110527
  3. ACYCLOVIR [Suspect]
     Indication: ANTIVIRAL PROPHYLAXIS
     Route: 048
     Dates: start: 20110428, end: 20110511
  4. ACTEMRA [Suspect]
     Route: 041
     Dates: start: 20110530, end: 20110530
  5. ACTEMRA [Suspect]
     Route: 041
     Dates: start: 20110519, end: 20110519
  6. ACYCLOVIR [Suspect]
     Route: 048
     Dates: start: 20110529, end: 20110610
  7. LIMETHASON [Suspect]
     Indication: JUVENILE ARTHRITIS
     Dosage: 7 TIMES
     Route: 041
     Dates: start: 20110426, end: 20110526
  8. PREDNISOLONE [Concomitant]
     Indication: JUVENILE ARTHRITIS
     Route: 048
     Dates: start: 20110520
  9. ACTEMRA [Suspect]
     Route: 041
     Dates: start: 20110610, end: 20110610
  10. FOSAMAX [Suspect]
     Indication: OSTEOPOROSIS PROPHYLAXIS
     Route: 048
     Dates: start: 20110512, end: 20110609
  11. ACTEMRA [Suspect]
     Indication: JUVENILE ARTHRITIS
     Route: 041
     Dates: start: 20110512, end: 20110512

REACTIONS (2)
  - OVERDOSE [None]
  - LIVER DISORDER [None]
